FAERS Safety Report 6393028-6 (Version None)
Quarter: 2009Q4

REPORT INFORMATION
  Report Type: 
  Country: None (occurrence: None)
  Receive Date: 20091008
  Receipt Date: 20070626
  Transmission Date: 20100525
  Serious: Yes (Hospitalization, Other)
  Sender: FDA-Public Use
  Company Number: US-ASTRAZENECA-2006UW11571

PATIENT
  Age: 13771 Day
  Sex: Female
  Weight: 73.5 kg

DRUGS (8)
  1. SEROQUEL [Suspect]
     Dosage: 25MG-400MG
     Route: 048
     Dates: start: 20020504
  2. RISPERDAL [Concomitant]
     Dates: start: 20061108
  3. LEXAPRO [Concomitant]
     Dosage: STRENGTH-10MG, 20MG DOSE-10MG-20MG DAILY
     Dates: start: 20040909
  4. METOCLOPRAMIDE [Concomitant]
  5. LAMICTAL [Concomitant]
     Dosage: STRENGTH-150MG, 200MG DOSE-200MG-300MG DAILY
     Route: 048
  6. ELAVIL [Concomitant]
     Indication: DEPRESSION
     Dosage: STRENGTH-10MG, 25MG DOSE-10MG-25MG DAILY
     Dates: start: 20040909
  7. ELAVIL [Concomitant]
     Indication: ANXIETY
     Dosage: STRENGTH-10MG, 25MG DOSE-10MG-25MG DAILY
     Dates: start: 20040909
  8. LISINOPRIL [Concomitant]
     Route: 048

REACTIONS (4)
  - DIABETES MELLITUS [None]
  - DIABETIC NEUROPATHY [None]
  - HYPERGLYCAEMIA [None]
  - TYPE 2 DIABETES MELLITUS [None]
